FAERS Safety Report 7796214 (Version 4)
Quarter: 2012Q4

REPORT INFORMATION
  Report Type: Report from Study
  Country: SE (occurrence: SE)
  Receive Date: 20110202
  Receipt Date: 20121017
  Transmission Date: 20130627
  Serious: Yes (Hospitalization)
  Sender: FDA-Public Use
  Company Number: SE-BRISTOL-MYERS SQUIBB COMPANY-15506454

PATIENT
  Age: 49 Year
  Sex: Female

DRUGS (5)
  1. SAXAGLIPTIN [Suspect]
     Indication: TYPE 2 DIABETES MELLITUS
     Route: 048
     Dates: start: 20101009, end: 20101129
  2. BLINDED: PLACEBO [Suspect]
     Indication: TYPE 2 DIABETES MELLITUS
     Route: 048
     Dates: start: 20101009, end: 20101129
  3. METFORMIN [Concomitant]
     Indication: TYPE 2 DIABETES MELLITUS
     Dosage: 15Mar11-01Jun11
1000mg:02Jun11-Ong
     Dates: start: 20110315
  4. ASPIRIN [Concomitant]
  5. EZETIMIBE [Concomitant]
     Dates: start: 20101228, end: 20120330

REACTIONS (1)
  - Hypokalaemia [Recovered/Resolved]
